FAERS Safety Report 16332326 (Version 1)
Quarter: 2019Q2

REPORT INFORMATION
  Report Type: Spontaneous
  Country: US (occurrence: US)
  Receive Date: 20190520
  Receipt Date: 20190520
  Transmission Date: 20190711
  Serious: No
  Sender: FDA-Public Use
  Company Number: US-MYLANLABS-2019M1042977

PATIENT
  Age: 71 Year
  Sex: Female
  Weight: 54 kg

DRUGS (2)
  1. WIXELA INHUB [Suspect]
     Active Substance: FLUTICASONE PROPIONATE\SALMETEROL XINAFOATE
     Indication: HYPERSENSITIVITY
     Dosage: 1 DOSAGE FORM, BID
     Route: 055
     Dates: start: 20190429, end: 20190429
  2. ZYRTEC [Concomitant]
     Active Substance: CETIRIZINE HYDROCHLORIDE
     Indication: HYPERSENSITIVITY

REACTIONS (7)
  - Tongue disorder [Recovering/Resolving]
  - Off label use [Not Recovered/Not Resolved]
  - Oral mucosal blistering [Recovering/Resolving]
  - Dry mouth [Recovering/Resolving]
  - Discomfort [Recovering/Resolving]
  - Skin exfoliation [Recovering/Resolving]
  - Fear [Recovered/Resolved]

NARRATIVE: CASE EVENT DATE: 20190429
